FAERS Safety Report 8612018-3 (Version None)
Quarter: 2012Q3

REPORT INFORMATION
  Report Type: 
  Country: None (occurrence: None)
  Receive Date: 20120822
  Receipt Date: 20120816
  Transmission Date: 20120928
  Serious: Yes (Disabling)
  Sender: FDA-Public Use
  Company Number: FR-GLAXOSMITHKLINE-B0823106A

PATIENT
  Sex: Female

DRUGS (3)
  1. SINEMET [Suspect]
     Indication: PARKINSON'S DISEASE
     Dosage: 100MG THREE TIMES PER DAY
     Route: 048
     Dates: end: 20120709
  2. AZILECT [Suspect]
     Indication: PARKINSON'S DISEASE
     Dosage: 1MG PER DAY
     Route: 048
  3. REQUIP [Suspect]
     Indication: PARKINSON'S DISEASE
     Route: 048

REACTIONS (4)
  - BURSITIS [None]
  - ROTATOR CUFF SYNDROME [None]
  - TENDONITIS [None]
  - INCORRECT DOSE ADMINISTERED [None]
